FAERS Safety Report 24038862 (Version 1)
Quarter: 2024Q3

REPORT INFORMATION
  Report Type: Spontaneous
  Country: ES (occurrence: ES)
  Receive Date: 20240702
  Receipt Date: 20240702
  Transmission Date: 20241016
  Serious: Yes (Death, Hospitalization, Other)
  Sender: CIPLA
  Company Number: ES-AEMPS-1393984

PATIENT

DRUGS (7)
  1. VALGANCICLOVIR [Suspect]
     Active Substance: VALGANCICLOVIR
     Indication: Cytomegalovirus infection
     Dosage: 450 MILLIGRAM, EVERY 2 DAYS
     Route: 048
     Dates: start: 20230317, end: 20230415
  2. CETIRIZINE [Suspect]
     Active Substance: CETIRIZINE HYDROCHLORIDE
     Indication: Psoriasis
     Dosage: 5 MILLIGRAM, QD
     Route: 048
     Dates: start: 20230321, end: 20230512
  3. FOSFOMYCIN [Suspect]
     Active Substance: FOSFOMYCIN
     Indication: Urinary tract infection
     Dosage: 3 GRAM, EVERY 2 DAYS
     Route: 065
     Dates: start: 20230424, end: 20230426
  4. TIGECYCLINE [Suspect]
     Active Substance: TIGECYCLINE
     Indication: Pyrexia
     Dosage: 50 MILLIGRAM, BID
     Route: 042
     Dates: start: 20230506, end: 20230508
  5. METRONIDAZOLE [Suspect]
     Active Substance: METRONIDAZOLE
     Indication: Infection
     Dosage: 800 MILLIGRAM, TID
     Route: 048
     Dates: start: 20230504, end: 20230505
  6. AZTREONAM [Suspect]
     Active Substance: AZTREONAM
     Indication: Pyrexia
     Dosage: 1 GRAM, TID
     Route: 042
     Dates: start: 20230506, end: 20230508
  7. CIPROFLOXACIN [Suspect]
     Active Substance: CIPROFLOXACIN
     Indication: Infection
     Dosage: 500 MILLIGRAM, BID
     Route: 048
     Dates: start: 20230504, end: 20230506

REACTIONS (1)
  - Toxic epidermal necrolysis [Fatal]

NARRATIVE: CASE EVENT DATE: 20230511
